FAERS Safety Report 4574128-X (Version None)
Quarter: 2005Q1

REPORT INFORMATION
  Report Type: 
  Country: None (occurrence: None)
  Receive Date: 20050204
  Receipt Date: 20041116
  Transmission Date: 20050727
  Serious: Yes (Other)
  Sender: FDA-Public Use
  Company Number: 2004094391

PATIENT
  Sex: Male
  Weight: 167 kg

DRUGS (4)
  1. CELEBREX [Suspect]
     Indication: BACK PAIN
     Dosage: ORAL
     Route: 048
  2. IBUPROFEN [Suspect]
     Indication: ILL-DEFINED DISORDER
  3. PHENYTOIN SODIUM [Concomitant]
  4. GLIBENCLAMIDE [Concomitant]

REACTIONS (13)
  - BACK PAIN [None]
  - BODY HEIGHT DECREASED [None]
  - CONDITION AGGRAVATED [None]
  - DRUG INEFFECTIVE [None]
  - FALL [None]
  - FEELING DRUNK [None]
  - FOOT FRACTURE [None]
  - GASTROOESOPHAGEAL REFLUX DISEASE [None]
  - HAEMATEMESIS [None]
  - HEPATIC CIRRHOSIS [None]
  - HEPATIC PAIN [None]
  - SPINAL DEFORMITY [None]
  - ULCER [None]
